FAERS Safety Report 8770352 (Version 1)
Quarter: 2012Q4

REPORT INFORMATION
  Report Type: 
  Country: US (occurrence: US)
  Receive Date: 20120906
  Receipt Date: 20120906
  Transmission Date: 20130627
  Serious: Yes (Hospitalization, Other)
  Sender: FDA-Public Use
  Company Number: US-BAXTER-2012BAX015525

PATIENT
  Age: 87 Year
  Sex: Male

DRUGS (2)
  1. DIANEAL LOW CALCIUM [Suspect]
     Indication: PERITONEAL DIALYSIS
     Route: 033
  2. DIANEAL LOW CALCIUM [Suspect]
     Indication: PERITONEAL DIALYSIS
     Route: 033

REACTIONS (8)
  - Arrhythmia [Recovering/Resolving]
  - Coronary artery disease [Recovering/Resolving]
  - Presbyoesophagus [Recovering/Resolving]
  - Dyspnoea exertional [Recovering/Resolving]
  - Blood culture positive [Recovering/Resolving]
  - Cardiovascular deconditioning [Recovering/Resolving]
  - Asthenia [Recovering/Resolving]
  - Dehydration [Recovering/Resolving]
